FAERS Safety Report 7969701-2 (Version None)
Quarter: 2011Q4

REPORT INFORMATION
  Report Type: 
  Country: None (occurrence: None)
  Receive Date: 20111212
  Receipt Date: 20111128
  Transmission Date: 20120403
  Serious: Yes (Death, Life-Threatening, Hospitalization, Other)
  Sender: FDA-Public Use
  Company Number: AU-JNJFOC-20110805068

PATIENT
  Sex: Male
  Weight: 59.1 kg

DRUGS (36)
  1. MORPHINE [Concomitant]
     Indication: PATHOLOGICAL FRACTURE
     Route: 065
     Dates: start: 20110804, end: 20110804
  2. DEXAMETHASONE [Concomitant]
     Route: 065
     Dates: start: 20110810, end: 20110811
  3. DEXAMETHASONE [Concomitant]
     Route: 065
     Dates: start: 20110812, end: 20110816
  4. RED BLOOD CELLS [Concomitant]
     Indication: ANAEMIA
     Route: 065
     Dates: start: 20110805
  5. ENOXAPARIN SODIUM [Concomitant]
     Indication: THROMBOSIS
     Route: 065
     Dates: start: 20110807, end: 20110812
  6. NYSTATIN [Concomitant]
     Indication: OESOPHAGEAL PAIN
     Route: 065
     Dates: start: 20110816, end: 20110817
  7. DEXAMETHASONE [Concomitant]
     Indication: PATHOLOGICAL FRACTURE
     Route: 065
     Dates: start: 20110804, end: 20110809
  8. METOCLOPRAMIDE [Concomitant]
     Indication: NAUSEA
     Route: 065
  9. SODIUM BICARBONATE [Concomitant]
     Indication: DENTAL DISORDER PROPHYLAXIS
     Route: 048
     Dates: start: 20110805, end: 20110812
  10. AGAROL LAXATIVE [Concomitant]
     Route: 065
     Dates: start: 20110807, end: 20110807
  11. COLOXYL + SENNA [Concomitant]
     Indication: CONSTIPATION
     Route: 065
     Dates: start: 20110811, end: 20110812
  12. CALCIUM CARBONATE [Concomitant]
     Indication: HYPOCALCAEMIA
     Route: 065
     Dates: start: 20110804, end: 20110811
  13. FENTANYL [Concomitant]
     Indication: PAIN
     Route: 065
     Dates: start: 20110101, end: 20110810
  14. MORPHINE SULFATE [Concomitant]
     Indication: SPINAL FRACTURE
     Route: 065
     Dates: start: 20110811, end: 20110812
  15. NYSTATIN [Concomitant]
     Indication: ABDOMINAL PAIN UPPER
     Route: 065
     Dates: start: 20110816, end: 20110817
  16. TAMSULOSIN HCL [Concomitant]
     Indication: POLLAKIURIA
     Route: 065
     Dates: start: 20110806, end: 20110812
  17. COLOXYL + SENNA [Concomitant]
     Route: 065
     Dates: start: 20110805, end: 20110810
  18. CALCITRIOL [Concomitant]
     Indication: HYPOCALCAEMIA
     Route: 065
     Dates: start: 20110804, end: 20110812
  19. PREDNISONE TAB [Suspect]
     Indication: PROSTATE CANCER METASTATIC
     Route: 065
     Dates: start: 20110725, end: 20110817
  20. METOCLOPRAMIDE [Concomitant]
     Indication: GASTROOESOPHAGEAL REFLUX DISEASE
     Route: 065
  21. SORBOLENE CREAM WITH 10% GLYCERINE [Concomitant]
     Indication: THERAPEUTIC PROCEDURE
     Route: 065
     Dates: start: 20110806, end: 20110812
  22. AGAROL LAXATIVE [Concomitant]
     Indication: CONSTIPATION
     Route: 065
     Dates: start: 20110804, end: 20110804
  23. MORPHINE SULFATE [Concomitant]
     Route: 065
     Dates: start: 20110804, end: 20110810
  24. ABIRATERONE ACETATE [Suspect]
     Indication: PROSTATE CANCER METASTATIC
     Route: 048
     Dates: start: 20110725, end: 20110816
  25. LEUPROLIDE ACETATE [Concomitant]
     Indication: HORMONE THERAPY
     Route: 065
     Dates: start: 20081215
  26. MOVIPREP [Concomitant]
     Route: 065
     Dates: start: 20110811, end: 20110812
  27. RABEPRAZOLE SODIUM [Concomitant]
     Indication: GASTROOESOPHAGEAL REFLUX DISEASE
     Route: 065
     Dates: start: 20110805, end: 20110812
  28. PROCHLORPERAZINE [Concomitant]
     Indication: NAUSEA
     Route: 065
     Dates: start: 20110807, end: 20110812
  29. XYLOCAINE [Concomitant]
     Indication: ABDOMINAL PAIN UPPER
     Route: 065
     Dates: start: 20110807, end: 20110808
  30. XYLOCAINE [Concomitant]
     Indication: OESOPHAGEAL PAIN
     Route: 065
     Dates: start: 20110807, end: 20110808
  31. METOCLOPRAMIDE [Concomitant]
     Indication: VOMITING
     Route: 065
  32. TEMAZEPAM [Concomitant]
     Indication: INSOMNIA
     Route: 065
     Dates: start: 20110804, end: 20110811
  33. MOVIPREP [Concomitant]
     Indication: CONSTIPATION
     Route: 065
     Dates: start: 20110805, end: 20110809
  34. ABIRATERONE ACETATE [Suspect]
     Route: 048
  35. ACETAMINOPHEN [Concomitant]
     Indication: SPINAL FRACTURE
     Route: 065
     Dates: start: 20110804, end: 20110810
  36. NYSTATIN [Concomitant]
     Indication: OROPHARYNGEAL PAIN
     Route: 065
     Dates: start: 20110816, end: 20110817

REACTIONS (30)
  - OEDEMA PERIPHERAL [None]
  - CERVICAL VERTEBRAL FRACTURE [None]
  - WHITE BLOOD CELL COUNT DECREASED [None]
  - GENERAL PHYSICAL HEALTH DETERIORATION [None]
  - CONSTIPATION [None]
  - NEUTROPENIA [None]
  - URINE OUTPUT DECREASED [None]
  - ABDOMINAL DISTENSION [None]
  - OSTEOSCLEROSIS [None]
  - DISEASE PROGRESSION [None]
  - NAUSEA [None]
  - LYMPHOPENIA [None]
  - PNEUMONIA [None]
  - NEOPLASM PROGRESSION [None]
  - SPINAL FRACTURE [None]
  - DYSPHAGIA [None]
  - PROSTATE CANCER METASTATIC [None]
  - ANAEMIA [None]
  - ABDOMINAL PAIN UPPER [None]
  - RESPIRATORY DISTRESS [None]
  - INTESTINAL OBSTRUCTION [None]
  - LUNG INFECTION [None]
  - PNEUMOTHORAX [None]
  - LETHARGY [None]
  - HEART RATE INCREASED [None]
  - PATHOLOGICAL FRACTURE [None]
  - THORACIC VERTEBRAL FRACTURE [None]
  - PLEURAL EFFUSION [None]
  - HYPOPHAGIA [None]
  - BLOOD PRESSURE DIASTOLIC DECREASED [None]
